FAERS Safety Report 25647607 (Version 1)
Quarter: 2025Q3

REPORT INFORMATION
  Report Type: Report from Study
  Country: US (occurrence: US)
  Receive Date: 20250806
  Receipt Date: 20250806
  Transmission Date: 20251020
  Serious: Yes (Hospitalization, Other)
  Sender: SUNOVION
  Company Number: US-SUMITOMO PHARMA SWITZERLAND GMBH-2025SPA001444

PATIENT
  Age: 65 Year
  Sex: Male

DRUGS (2)
  1. ORGOVYX [Suspect]
     Active Substance: RELUGOLIX
     Indication: Prostate cancer
     Dosage: 120 MG, QD
     Route: 048
     Dates: start: 20250127
  2. XTANDI [Concomitant]
     Active Substance: ENZALUTAMIDE
     Indication: Product used for unknown indication

REACTIONS (14)
  - Abdominal infection [Unknown]
  - Dysuria [Unknown]
  - Laboratory test abnormal [Unknown]
  - Pain [Unknown]
  - Pollakiuria [Unknown]
  - Condition aggravated [Unknown]
  - Heart rate increased [Unknown]
  - Palpitations [Unknown]
  - Hypoaesthesia [Unknown]
  - Back pain [Unknown]
  - Fatigue [Recovering/Resolving]
  - Hot flush [Not Recovered/Not Resolved]
  - Constipation [Unknown]
  - Incorrect dose administered [Unknown]
